FAERS Safety Report 9334907 (Version 1)
Quarter: 2013Q2

REPORT INFORMATION
  Report Type: Spontaneous
  Country: US (occurrence: US)
  Receive Date: 20130606
  Receipt Date: 20130606
  Transmission Date: 20140414
  Serious: Yes (Hospitalization, Other)
  Sender: FDA-Public Use
  Company Number: US-ASTRAZENECA-2013SE37725

PATIENT
  Age: 78 Year
  Sex: Male
  Weight: 83.9 kg

DRUGS (18)
  1. NEXIUM [Suspect]
     Indication: GASTROOESOPHAGEAL REFLUX DISEASE
     Route: 048
     Dates: start: 201305
  2. LISINOPRIL [Suspect]
     Indication: BLOOD PRESSURE ABNORMAL
  3. OMEPRAZOLE [Suspect]
     Indication: GASTROOESOPHAGEAL REFLUX DISEASE
     Route: 048
     Dates: start: 2010, end: 20130521
  4. SYMVASTATIN [Concomitant]
     Indication: BLOOD PRESSURE ABNORMAL
  5. CARDURA [Concomitant]
     Indication: BLOOD PRESSURE ABNORMAL
  6. CARDURA [Concomitant]
     Indication: PROSTATIC DISORDER
  7. HYDRALAZINE [Concomitant]
     Indication: BLOOD PRESSURE ABNORMAL
  8. WARFARIN [Concomitant]
     Indication: ATRIAL FIBRILLATION
     Dosage: 2 OR 4MG DAILY
  9. WARFARIN [Concomitant]
     Indication: ANTICOAGULANT THERAPY
     Dosage: 2 OR 4MG DAILY
  10. FLUOXETINE [Concomitant]
  11. CIPROFLOXACIN [Concomitant]
     Indication: CYSTITIS
  12. SYNTHROID [Concomitant]
     Indication: THYROID DISORDER
  13. ACETAMINOPHEN [Concomitant]
     Indication: ARTHRALGIA
  14. MAGNESIUM [Concomitant]
     Indication: MINERAL SUPPLEMENTATION
  15. MULTIVITAMIN [Concomitant]
     Dosage: DAILY
  16. ASPIRIN [Concomitant]
     Indication: ANTICOAGULANT THERAPY
     Dosage: DAILY
  17. PLAVIX [Concomitant]
     Indication: STENT PLACEMENT
  18. METOPROLOL TARTRATE [Concomitant]
     Indication: BLOOD PRESSURE ABNORMAL

REACTIONS (9)
  - Arrhythmia [Unknown]
  - Atrial fibrillation [Unknown]
  - Blood urine present [Unknown]
  - Cystitis [Unknown]
  - Dyspepsia [Unknown]
  - Urinary retention [Unknown]
  - Hallucination [Unknown]
  - Blood pressure fluctuation [Unknown]
  - Gastrooesophageal reflux disease [Unknown]
